FAERS Safety Report 13156307 (Version 2)
Quarter: 2017Q1

REPORT INFORMATION
  Report Type: Spontaneous
  Country: US (occurrence: US)
  Receive Date: 20170126
  Receipt Date: 20170330
  Transmission Date: 20170428
  Serious: Yes (Hospitalization, Other)
  Sender: FDA-Public Use
  Company Number: US-ELI_LILLY_AND_COMPANY-US201607013806

PATIENT
  Age: 54 Year
  Sex: Female

DRUGS (3)
  1. MELOXICAM. [Concomitant]
     Active Substance: MELOXICAM
     Indication: PRODUCT USED FOR UNKNOWN INDICATION
     Dosage: 7.5 MG, QD
     Route: 048
  2. CYMBALTA [Suspect]
     Active Substance: DULOXETINE HYDROCHLORIDE
     Indication: PRODUCT USED FOR UNKNOWN INDICATION
     Dosage: 60 MG, QD
     Route: 048
  3. LORTAB [Concomitant]
     Active Substance: ACETAMINOPHEN\HYDROCODONE BITARTRATE
     Indication: PRODUCT USED FOR UNKNOWN INDICATION
     Dosage: 7.5 MG, PRN
     Route: 048

REACTIONS (21)
  - Paraesthesia [Unknown]
  - Tinnitus [Unknown]
  - Insomnia [Unknown]
  - Agitation [Unknown]
  - Diarrhoea [Unknown]
  - Suicidal ideation [Unknown]
  - Lethargy [Unknown]
  - Tremor [Unknown]
  - Hyperhidrosis [Unknown]
  - Tachycardia [Unknown]
  - Dysphoria [Unknown]
  - Confusional state [Unknown]
  - Suicide attempt [Unknown]
  - Dizziness [Unknown]
  - Anxiety [Unknown]
  - Sensory disturbance [Unknown]
  - Affect lability [Unknown]
  - Drug withdrawal syndrome [Unknown]
  - Fatigue [Unknown]
  - Irritability [Unknown]
  - Headache [Unknown]

NARRATIVE: CASE EVENT DATE: 20140511
